FAERS Safety Report 4889337-X (Version None)
Quarter: 2006Q1

REPORT INFORMATION
  Report Type: 
  Country: None (occurrence: None)
  Receive Date: 20060120
  Receipt Date: 20060120
  Transmission Date: 20060701
  Serious: Yes (Death)
  Sender: FDA-Public Use
  Company Number: None

PATIENT
  Age: 47 Year
  Sex: Female
  Weight: 48.9885 kg

DRUGS (3)
  1. DURAGESIC-50 [Suspect]
     Indication: POSTOPERATIVE ANALGESIA
     Dosage: 50 MICROGRAMS   EVERY 72 HOURS  TRANSDERMAL
     Route: 062
     Dates: start: 20051023, end: 20051025
  2. OXYCODONE [Concomitant]
  3. MORPHINE [Concomitant]

REACTIONS (1)
  - DRUG TOXICITY [None]
